FAERS Safety Report 25677077 (Version 2)
Quarter: 2025Q3

REPORT INFORMATION
  Report Type: Spontaneous
  Country: US (occurrence: US)
  Receive Date: 20250813
  Receipt Date: 20250912
  Transmission Date: 20251020
  Serious: Yes (Hospitalization)
  Sender: SANOFI AVENTIS
  Company Number: US-SA-2025SA235631

PATIENT
  Sex: Female
  Weight: 65.91 kg

DRUGS (18)
  1. DUPIXENT [Suspect]
     Active Substance: DUPILUMAB
     Indication: Illness
     Dosage: 300 MG, QOW
     Route: 058
  2. AMBRISENTAN [Suspect]
     Active Substance: AMBRISENTAN
  3. VALIUM [Concomitant]
     Active Substance: DIAZEPAM
  4. CLONAZEPAM [Concomitant]
     Active Substance: CLONAZEPAM
  5. XANAX [Concomitant]
     Active Substance: ALPRAZOLAM
  6. ONDANSETRON HYDROCHLORIDE [Concomitant]
     Active Substance: ONDANSETRON HYDROCHLORIDE
  7. WELLBUTRIN XL [Concomitant]
     Active Substance: BUPROPION HYDROCHLORIDE
  8. VYVANSE [Concomitant]
     Active Substance: LISDEXAMFETAMINE DIMESYLATE
  9. VYVANSE [Concomitant]
     Active Substance: LISDEXAMFETAMINE DIMESYLATE
  10. NP THYROID [Concomitant]
     Active Substance: LEVOTHYROXINE\LIOTHYRONINE
  11. JUNEL FE 1/20 [Concomitant]
     Active Substance: ETHINYL ESTRADIOL\NORETHINDRONE ACETATE
  12. IPRATROPIUM BROMIDE [Concomitant]
     Active Substance: IPRATROPIUM BROMIDE
  13. HYDROXOCOBALAMIN [Concomitant]
     Active Substance: HYDROXOCOBALAMIN
  14. GLYCOPYRROLATE [Concomitant]
     Active Substance: GLYCOPYRROLATE
  15. EUCRISA [Concomitant]
     Active Substance: CRISABOROLE
  16. DESONIDE [Concomitant]
     Active Substance: DESONIDE
  17. ALBUTEROL SULFATE [Concomitant]
     Active Substance: ALBUTEROL SULFATE
  18. ADDERALL [Concomitant]
     Active Substance: AMPHETAMINE ASPARTATE\AMPHETAMINE SULFATE\DEXTROAMPHETAMINE SACCHARATE\DEXTROAMPHETAMINE SULFATE

REACTIONS (8)
  - Rash [Unknown]
  - Inappropriate schedule of product administration [Unknown]
  - Hepatic enzyme increased [Unknown]
  - Liver disorder [Unknown]
  - Hepatic lesion [Unknown]
  - Gallbladder disorder [Unknown]
  - Urticaria [Unknown]
  - Drug hypersensitivity [Unknown]
